FAERS Safety Report 6747851-6 (Version None)
Quarter: 2010Q2

REPORT INFORMATION
  Report Type: 
  Country: None (occurrence: None)
  Receive Date: 20100528
  Receipt Date: 20100517
  Transmission Date: 20101027
  Serious: No
  Sender: FDA-Public Use
  Company Number: B0623576A

PATIENT
  Sex: Female
  Weight: 56 kg

DRUGS (7)
  1. RELENZA [Suspect]
     Indication: INFLUENZA
     Dosage: 20MG PER DAY
     Route: 055
     Dates: start: 20091226
  2. CALONAL [Concomitant]
     Indication: ANTIPYRESIS
     Route: 048
     Dates: start: 20091226
  3. ZITHROMAX [Concomitant]
     Indication: CHLAMYDIAL CERVICITIS
     Dosage: 1000MG PER DAY
     Route: 048
     Dates: start: 20100121
  4. UTEMERIN [Concomitant]
     Dosage: 15MG PER DAY
     Route: 048
     Dates: start: 20100218, end: 20100220
  5. UTEMERIN [Concomitant]
     Route: 042
     Dates: start: 20100220, end: 20100225
  6. OXYTOCIN [Concomitant]
     Route: 042
     Dates: start: 20100420
  7. INFLUENZA HA VACCINE [Concomitant]
     Dosage: .5ML PER DAY
     Route: 058
     Dates: start: 20091112, end: 20091112

REACTIONS (2)
  - DELIVERY [None]
  - DRUG EXPOSURE DURING PREGNANCY [None]
